FAERS Safety Report 7378065-7 (Version None)
Quarter: 2011Q1

REPORT INFORMATION
  Report Type: 
  Country: None (occurrence: None)
  Receive Date: 20110328
  Receipt Date: 20110321
  Transmission Date: 20110831
  Serious: No
  Sender: FDA-Public Use
  Company Number: US-PFIZER INC-2011063271

PATIENT
  Age: 76 Year
  Sex: Male

DRUGS (1)
  1. TORISEL [Suspect]
     Dosage: UNK
     Dates: start: 20100101

REACTIONS (3)
  - RESPIRATORY TRACT INFLAMMATION [None]
  - RASH [None]
  - TOXICITY TO VARIOUS AGENTS [None]
